FAERS Safety Report 8922255 (Version 4)
Quarter: 2013Q1

REPORT INFORMATION
  Report Type: Report from Study
  Country: US (occurrence: US)
  Receive Date: 20121126
  Receipt Date: 20130222
  Transmission Date: 20140127
  Serious: Yes (Other)
  Sender: FDA-Public Use
  Company Number: US-ACTELION-A-US2011-55904

PATIENT
  Age: 88 Year
  Sex: Male

DRUGS (3)
  1. TRACLEER [Suspect]
     Indication: PULMONARY ARTERIAL HYPERTENSION
     Dosage: UNK
     Route: 048
  2. REVATIO [Concomitant]
  3. COUMADIN [Concomitant]

REACTIONS (12)
  - Lung infection [Unknown]
  - Lung neoplasm malignant [Unknown]
  - Ear disorder [Unknown]
  - Vision blurred [Unknown]
  - Chronic obstructive pulmonary disease [Unknown]
  - Sinusitis [Unknown]
  - Dizziness [Unknown]
  - Chronic sinusitis [Unknown]
  - Oedema [Unknown]
  - Asthenia [Unknown]
  - Fatigue [Unknown]
  - Muscular weakness [Unknown]
